FAERS Safety Report 25828171 (Version 2)
Quarter: 2025Q3

REPORT INFORMATION
  Report Type: Spontaneous
  Country: US (occurrence: US)
  Receive Date: 20250921
  Receipt Date: 20250925
  Transmission Date: 20251020
  Serious: No
  Sender: Harrow Health
  Company Number: US-HARROW-HAR-2025-US-00776

PATIENT
  Age: 71 Year
  Sex: Female

DRUGS (1)
  1. VEVYE [Suspect]
     Active Substance: CYCLOSPORINE
     Indication: Dry eye
     Route: 047
     Dates: start: 20250807, end: 20250809

REACTIONS (3)
  - Mydriasis [Recovered/Resolved]
  - Ocular hyperaemia [Recovered/Resolved]
  - Eye pain [Recovered/Resolved]

NARRATIVE: CASE EVENT DATE: 20250808
